FAERS Safety Report 8846489 (Version 1)
Quarter: 2012Q4

REPORT INFORMATION
  Report Type: 
  Country: US (occurrence: US)
  Receive Date: 20121017
  Receipt Date: 20121017
  Transmission Date: 20130627
  Serious: No
  Sender: FDA-Public Use
  Company Number: US-GLAXOSMITHKLINE-A0943457A

PATIENT
  Age: 8 Year
  Sex: Female

DRUGS (1)
  1. CEFTIN [Suspect]
     Dosage: 250MG Twice per day
     Route: 048

REACTIONS (2)
  - Overdose [Unknown]
  - Product quality issue [Unknown]
